FAERS Safety Report 25440330 (Version 2)
Quarter: 2025Q3

REPORT INFORMATION
  Report Type: Spontaneous
  Country: CA (occurrence: CA)
  Receive Date: 20250616
  Receipt Date: 20250730
  Transmission Date: 20251021
  Serious: Yes (Other)
  Sender: TAKEDA
  Company Number: CA-TAKEDA-2025TUS054906

PATIENT
  Age: 81 Year
  Sex: Female

DRUGS (9)
  1. MESALAMINE [Suspect]
     Active Substance: MESALAMINE
     Indication: Product used for unknown indication
     Dosage: 4.8 GRAM, 1/WEEK
  2. MESALAMINE [Suspect]
     Active Substance: MESALAMINE
     Dosage: 4.8 GRAM, QD
  3. METHOTREXATE [Suspect]
     Active Substance: METHOTREXATE
     Indication: Arthritis enteropathic
     Dosage: 15 MILLIGRAM, 1/WEEK
     Dates: start: 202410
  4. METHOTREXATE [Suspect]
     Active Substance: METHOTREXATE
     Indication: Arthritis
  5. PREDNISONE [Suspect]
     Active Substance: PREDNISONE
     Indication: Arthritis enteropathic
     Dosage: 15 MILLIGRAM, QD
  6. PREDNISONE [Suspect]
     Active Substance: PREDNISONE
     Dosage: 15 MILLIGRAM, QD
  7. PREDNISONE [Suspect]
     Active Substance: PREDNISONE
     Dosage: 5 MILLIGRAM, QD
  8. PREDNISONE [Suspect]
     Active Substance: PREDNISONE
     Dosage: 40 MILLIGRAM, QD
  9. PREDNISONE [Suspect]
     Active Substance: PREDNISONE
     Dosage: 5 MILLIGRAM, QD

REACTIONS (2)
  - Colitis [Unknown]
  - Condition aggravated [Unknown]

NARRATIVE: CASE EVENT DATE: 20240101
